FAERS Safety Report 15628221 (Version 1)
Quarter: 2018Q4

REPORT INFORMATION
  Report Type: Spontaneous
  Country: US (occurrence: US)
  Receive Date: 20181116
  Receipt Date: 20181116
  Transmission Date: 20190205
  Serious: No
  Sender: FDA-Public Use
  Company Number: US-PFIZER INC-2018468479

PATIENT
  Age: 62 Year
  Sex: Female
  Weight: 86.17 kg

DRUGS (3)
  1. DOCETAXEL. [Suspect]
     Active Substance: DOCETAXEL
     Indication: BREAST CANCER
     Dosage: UNK, EVERY 3 WEEKS
     Dates: start: 20121210
  2. SIMVASTATIN. [Concomitant]
     Active Substance: SIMVASTATIN
  3. DIOVAN [Concomitant]
     Active Substance: VALSARTAN

REACTIONS (2)
  - Madarosis [Unknown]
  - Alopecia [Unknown]
